FAERS Safety Report 8183089-6 (Version None)
Quarter: 2012Q1

REPORT INFORMATION
  Report Type: 
  Country: None (occurrence: None)
  Receive Date: 20120201
  Receipt Date: 20111116
  Transmission Date: 20120608
  Serious: Yes (Disabling, Other)
  Sender: FDA-Public Use
  Company Number: 309741USA

PATIENT
  Sex: Female

DRUGS (2)
  1. PROPACET 100 [Suspect]
     Indication: PAIN MANAGEMENT
  2. PROPOXYPHENE NAPSYLATE W/ ACETAMINOPHEN [Suspect]
     Indication: PAIN MANAGEMENT

REACTIONS (3)
  - MYOCARDIAL INFARCTION [None]
  - ARRHYTHMIA [None]
  - CARDIOVASCULAR DISORDER [None]
